FAERS Safety Report 13227198 (Version 1)
Quarter: 2017Q1

REPORT INFORMATION
  Report Type: Spontaneous
  Country: US (occurrence: US)
  Receive Date: 20170213
  Receipt Date: 20170213
  Transmission Date: 20170428
  Serious: No
  Sender: FDA-Public Use
  Company Number: US-TEVA-737777ACC

PATIENT
  Age: 54 Year
  Sex: Female

DRUGS (4)
  1. VESICARE [Concomitant]
     Active Substance: SOLIFENACIN SUCCINATE
  2. COPAXONE [Suspect]
     Active Substance: GLATIRAMER ACETATE
     Indication: MULTIPLE SCLEROSIS
     Route: 058
     Dates: start: 20161031
  3. ZOLOFT [Concomitant]
     Active Substance: SERTRALINE HYDROCHLORIDE
  4. PROPRANOLOL ER [Concomitant]

REACTIONS (5)
  - Drug dose omission [Unknown]
  - Hypoaesthesia [Unknown]
  - Injection site swelling [Unknown]
  - Fall [Unknown]
  - Injection site pain [Unknown]

NARRATIVE: CASE EVENT DATE: 20170111
